FAERS Safety Report 11988410 (Version 2)
Quarter: 2016Q1

REPORT INFORMATION
  Report Type: Spontaneous
  Country: US (occurrence: US)
  Receive Date: 20160202
  Receipt Date: 20160317
  Transmission Date: 20160526
  Serious: Yes (Hospitalization, Other)
  Sender: FDA-Public Use
  Company Number: US-009507513-1601USA010652

PATIENT
  Sex: Male

DRUGS (1)
  1. JANUMET XR [Suspect]
     Active Substance: METFORMIN HYDROCHLORIDE\SITAGLIPTIN PHOSPHATE
     Indication: TYPE 2 DIABETES MELLITUS
     Dosage: 1 TABLET (STRENGTH: 100/1000 MG), TWICE DAILY
     Route: 048
     Dates: end: 2015

REACTIONS (4)
  - Overdose [Unknown]
  - Spinal operation [Unknown]
  - Inappropriate schedule of drug administration [Unknown]
  - Pancreatitis acute [Recovered/Resolved]

NARRATIVE: CASE EVENT DATE: 2015
